FAERS Safety Report 12409023 (Version 2)
Quarter: 2016Q2

REPORT INFORMATION
  Report Type: Spontaneous
  Country: US (occurrence: US)
  Receive Date: 20160526
  Receipt Date: 20160602
  Transmission Date: 20160815
  Serious: No
  Sender: FDA-Public Use
  Company Number: US-MDT-ADR-2016-00956

PATIENT
  Age: 60 Year
  Sex: Male

DRUGS (1)
  1. BACLOFEN. [Suspect]
     Active Substance: BACLOFEN
     Route: 037

REACTIONS (2)
  - Medical device site erythema [Unknown]
  - Implant site cellulitis [Unknown]

NARRATIVE: CASE EVENT DATE: 201605
